FAERS Safety Report 9266247 (Version 1)
Quarter: 2013Q2

REPORT INFORMATION
  Report Type: Spontaneous
  Country: GB (occurrence: GB)
  Receive Date: 20130502
  Receipt Date: 20130502
  Transmission Date: 20140414
  Serious: Yes (Hospitalization, Other)
  Sender: FDA-Public Use
  Company Number: GB-ROCHE-1207048

PATIENT
  Age: 53 Year
  Sex: Female
  Weight: 76 kg

DRUGS (3)
  1. RIBAVIRIN [Suspect]
     Indication: HEPATITIS C
     Route: 065
     Dates: start: 20130111, end: 20130322
  2. INCIVO [Suspect]
     Indication: HEPATITIS C
     Route: 048
     Dates: end: 20130317
  3. PEGINTERFERON ALFA-2B [Suspect]
     Indication: HEPATITIS C
     Route: 058
     Dates: start: 20130111, end: 20130322

REACTIONS (2)
  - Rash generalised [Not Recovered/Not Resolved]
  - Renal failure acute [Unknown]
